FAERS Safety Report 21002978 (Version 1)
Quarter: 2022Q2

REPORT INFORMATION
  Report Type: Spontaneous
  Country: BR (occurrence: BR)
  Receive Date: 20220624
  Receipt Date: 20220624
  Transmission Date: 20220721
  Serious: Yes (Hospitalization, Other)
  Sender: FDA-Public Use
  Company Number: BR-JNJFOC-20220642790

PATIENT
  Sex: Female

DRUGS (7)
  1. HALOPERIDOL [Suspect]
     Active Substance: HALOPERIDOL
     Indication: Schizophrenia
     Route: 048
  2. RISPERIDONE [Suspect]
     Active Substance: RISPERIDONE
     Indication: Schizophrenia
     Route: 048
  3. DEPAKENE [Concomitant]
     Active Substance: VALPROIC ACID
     Indication: Schizophrenia
  4. SERTRALINE [Concomitant]
     Active Substance: SERTRALINE HYDROCHLORIDE
     Indication: Schizophrenia
  5. CLONAZEPAM [Concomitant]
     Active Substance: CLONAZEPAM
     Indication: Schizophrenia
  6. BIPERIDEN [Concomitant]
     Active Substance: BIPERIDEN
     Indication: Schizophrenia
  7. DIAZEPAM [Concomitant]
     Active Substance: DIAZEPAM
     Indication: Schizophrenia

REACTIONS (11)
  - Schizophrenia [Not Recovered/Not Resolved]
  - Vomiting [Unknown]
  - Diarrhoea [Unknown]
  - Dehydration [Unknown]
  - Gastrointestinal disorder [Unknown]
  - Hypokinesia [Not Recovered/Not Resolved]
  - Blood glucose increased [Unknown]
  - Dyslipidaemia [Unknown]
  - Drug ineffective [Not Recovered/Not Resolved]
  - Galactorrhoea [Unknown]
  - Unevaluable event [Unknown]
